FAERS Safety Report 4914147-4 (Version None)
Quarter: 2006Q1

REPORT INFORMATION
  Report Type: 
  Country: None (occurrence: None)
  Receive Date: 20060216
  Receipt Date: 20060117
  Transmission Date: 20060701
  Serious: Yes (Hospitalization, Other)
  Sender: FDA-Public Use
  Company Number: PHEH2006US01056

PATIENT
  Age: 53 Year
  Sex: Female

DRUGS (9)
  1. DOXIL [Concomitant]
     Indication: BREAST CANCER
     Dosage: UNK, UNK
     Dates: end: 20050407
  2. TAXOL [Concomitant]
  3. ZOMETA [Suspect]
     Indication: BREAST CANCER METASTATIC
     Dosage: 4 MG, Q4WK
     Dates: start: 20020723, end: 20050818
  4. FLUOROURACIL [Concomitant]
  5. VINORELBINE TARTRATE [Concomitant]
  6. FEMARA [Concomitant]
     Route: 048
  7. GEMZAR [Concomitant]
  8. CYTOXAN [Concomitant]
  9. ADRIAMYCIN PFS [Concomitant]

REACTIONS (9)
  - CELLULITIS [None]
  - GINGIVAL DISORDER [None]
  - HYPOKALAEMIA [None]
  - HYPOMAGNESAEMIA [None]
  - INFECTION [None]
  - JAW DISORDER [None]
  - OEDEMA PERIPHERAL [None]
  - OSTEONECROSIS [None]
  - PAIN IN JAW [None]
